FAERS Safety Report 19207729 (Version 2)
Quarter: 2021Q3

REPORT INFORMATION
  Report Type: Spontaneous
  Country: US (occurrence: US)
  Receive Date: 20210503
  Receipt Date: 20210707
  Transmission Date: 20211014
  Serious: No
  Sender: FDA-Public Use
  Company Number: US-ASTRAZENECA-2021A365335

PATIENT
  Age: 22179 Day
  Sex: Male

DRUGS (1)
  1. FASENRA [Suspect]
     Active Substance: BENRALIZUMAB
     Indication: ASTHMA
     Route: 058

REACTIONS (8)
  - Wrong technique in device usage process [Unknown]
  - Device leakage [Unknown]
  - Wound [Unknown]
  - Condition aggravated [Unknown]
  - Intentional device misuse [Unknown]
  - Product dose omission issue [Unknown]
  - Injection site mass [Unknown]
  - Incorrect dose administered by device [Unknown]

NARRATIVE: CASE EVENT DATE: 20210426
